FAERS Safety Report 15156673 (Version 2)
Quarter: 2018Q3

REPORT INFORMATION
  Report Type: Spontaneous
  Country: US (occurrence: US)
  Receive Date: 20180717
  Receipt Date: 20180903
  Transmission Date: 20181010
  Serious: No
  Sender: FDA-Public Use
  Company Number: US-ASTRAZENECA-2018SE80021

PATIENT
  Age: 25895 Day
  Sex: Female
  Weight: 96.2 kg

DRUGS (1)
  1. BYDUREON [Suspect]
     Active Substance: EXENATIDE
     Indication: TYPE 2 DIABETES MELLITUS
     Route: 058
     Dates: start: 2013

REACTIONS (6)
  - Drug dose omission [Unknown]
  - Underdose [Unknown]
  - Intentional product misuse [Unknown]
  - Abdominal discomfort [Unknown]
  - Weight increased [Unknown]
  - Injection site extravasation [Unknown]

NARRATIVE: CASE EVENT DATE: 20180524
